APPROVED DRUG PRODUCT: GEMFIBROZIL
Active Ingredient: GEMFIBROZIL
Strength: 600MG
Dosage Form/Route: TABLET;ORAL
Application: A079072 | Product #001 | TE Code: AB
Applicant: NORTHSTAR HEALTHCARE HOLDINGS LTD
Approved: Sep 13, 2010 | RLD: No | RS: No | Type: RX